FAERS Safety Report 9132757 (Version 1)
Quarter: 2013Q1

REPORT INFORMATION
  Report Type: Spontaneous
  Country: DE (occurrence: DE)
  Receive Date: 20130128
  Receipt Date: 20130128
  Transmission Date: 20140127
  Serious: Yes (Hospitalization)
  Sender: FDA-Public Use
  Company Number: DE-TEVA-380893GER

PATIENT
  Sex: Male

DRUGS (3)
  1. MYFENAX [Suspect]
  2. CICLOSPORIN [Concomitant]
  3. TACROLIMUS [Concomitant]

REACTIONS (2)
  - Hyperkalaemia [Recovered/Resolved]
  - Acidosis [Recovered/Resolved]
